FAERS Safety Report 8693566 (Version 2)
Quarter: 2012Q4

REPORT INFORMATION
  Report Type: 
  Country: AR (occurrence: AR)
  Receive Date: 20120731
  Receipt Date: 20121005
  Transmission Date: 20130627
  Serious: Yes (Hospitalization)
  Sender: FDA-Public Use
  Company Number: AR-AMGEN-ARGSP2012046351

PATIENT
  Age: 60 Year
  Sex: Female

DRUGS (1)
  1. ENBREL [Suspect]
     Indication: PSORIATIC ARTHROPATHY
     Dosage: 50 mg, weekly
     Route: 058
     Dates: start: 2012

REACTIONS (2)
  - Mania [Not Recovered/Not Resolved]
  - Skin disorder [Unknown]
